FAERS Safety Report 5921137-1 (Version None)
Quarter: 2008Q4

REPORT INFORMATION
  Report Type: 
  Country: None (occurrence: None)
  Receive Date: 20081016
  Receipt Date: 20081006
  Transmission Date: 20090506
  Serious: Yes (Other)
  Sender: FDA-Public Use
  Company Number: US-ABBOTT-08P-163-0480199-00

PATIENT
  Sex: Female
  Weight: 118.04 kg

DRUGS (2)
  1. HUMIRA [Suspect]
     Indication: RHEUMATOID ARTHRITIS
     Route: 058
     Dates: end: 20080714
  2. HUMIRA [Suspect]
     Indication: SYSTEMIC LUPUS ERYTHEMATOSUS
     Dates: start: 20080908

REACTIONS (8)
  - ACCIDENTAL EXPOSURE [None]
  - DIARRHOEA [None]
  - EAR INFECTION [None]
  - GALLBLADDER DISORDER [None]
  - PAIN [None]
  - PHARYNGITIS [None]
  - SEPSIS [None]
  - VOMITING [None]
